FAERS Safety Report 5328035-5 (Version None)
Quarter: 2007Q2

REPORT INFORMATION
  Report Type: 
  Country: None (occurrence: None)
  Receive Date: 20070517
  Receipt Date: 20070517
  Transmission Date: 20071010
  Serious: Yes (Death)
  Sender: FDA-Public Use
  Company Number: US-GENENTECH-231361

PATIENT

DRUGS (1)
  1. AVASTIN [Suspect]
     Indication: COLORECTAL CANCER

REACTIONS (1)
  - ARRHYTHMIA [None]
